FAERS Safety Report 7059423-7 (Version None)
Quarter: 2010Q4

REPORT INFORMATION
  Report Type: 
  Country: None (occurrence: None)
  Receive Date: 20101025
  Receipt Date: 20101014
  Transmission Date: 20110411
  Serious: No
  Sender: FDA-Public Use
  Company Number: KR-JNJFOC-20101004179

PATIENT
  Age: 82 Year
  Sex: Female

DRUGS (1)
  1. DURAGESIC-100 [Suspect]
     Indication: PAIN MANAGEMENT
     Dosage: END DATE SEP-2010
     Route: 062

REACTIONS (2)
  - DIZZINESS [None]
  - TREATMENT NONCOMPLIANCE [None]
